FAERS Safety Report 6256024-5 (Version None)
Quarter: 2009Q2

REPORT INFORMATION
  Report Type: 
  Country: None (occurrence: None)
  Receive Date: 20090630
  Receipt Date: 20090630
  Transmission Date: 20091009
  Serious: Yes (Other)
  Sender: FDA-Public Use
  Company Number: None

PATIENT
  Age: 53 Year
  Sex: Female
  Weight: 74.8435 kg

DRUGS (3)
  1. ZICAM NASAL SPRAY  I THREW IT AWAY [Suspect]
     Indication: NASOPHARYNGITIS
     Dosage: NASAL
     Dates: start: 20070202, end: 20070205
  2. ZICAM NASAL SPRAY  I THREW IT AWAY [Suspect]
     Indication: OROPHARYNGEAL PAIN
     Dosage: NASAL
     Dates: start: 20070202, end: 20070205
  3. ZICAM NASAL SPRAY  I THREW IT AWAY [Suspect]
     Indication: SINUS CONGESTION
     Dosage: NASAL
     Dates: start: 20070202, end: 20070205

REACTIONS (2)
  - ANOSMIA [None]
  - DYSGEUSIA [None]
